FAERS Safety Report 4323936-9 (Version None)
Quarter: 2004Q1

REPORT INFORMATION
  Report Type: 
  Country: None (occurrence: None)
  Receive Date: 20040326
  Receipt Date: 20031110
  Transmission Date: 20041129
  Serious: No
  Sender: FDA-Public Use
  Company Number: US-GLAXOSMITHKLINE-A0439029A

PATIENT
  Age: 58 Year
  Sex: Female

DRUGS (8)
  1. ADVAIR DISKUS 100/50 [Suspect]
     Indication: ASTHMA
     Dosage: 1PUFF TWICE PER DAY
     Route: 055
     Dates: start: 20030201
  2. ALBUTEROL [Concomitant]
  3. CLARITIN [Concomitant]
  4. PREVACID [Concomitant]
  5. NEURONTIN [Concomitant]
  6. ELAVIL [Concomitant]
  7. MIACALCIN [Concomitant]
  8. CALCIUM CITRATE [Concomitant]

REACTIONS (2)
  - ORAL CANDIDIASIS [None]
  - STOMATITIS [None]
